FAERS Safety Report 10355552 (Version 1)
Quarter: 2014Q3

REPORT INFORMATION
  Report Type: Spontaneous
  Country: US (occurrence: None)
  Receive Date: 20140728
  Receipt Date: 20140728
  Transmission Date: 20150326
  Serious: Yes (Hospitalization, Other)
  Sender: FDA-Public Use
  Company Number: FK201402791

PATIENT
  Age: 9 Month
  Sex: Female

DRUGS (1)
  1. FOSPHENYTOIN [Suspect]
     Active Substance: FOSPHENYTOIN\FOSPHENYTOIN SODIUM
     Indication: CONVULSION
     Dosage: LOADING DOSE
     Route: 042

REACTIONS (7)
  - Hypotension [None]
  - Hypoxia [None]
  - Cardiogenic shock [None]
  - Cardiomyopathy [None]
  - Acute respiratory failure [None]
  - Tachycardia [None]
  - Accidental overdose [None]
